FAERS Safety Report 5972010-4 (Version None)
Quarter: 2008Q4

REPORT INFORMATION
  Report Type: 
  Country: None (occurrence: None)
  Receive Date: 20081125
  Receipt Date: 20081114
  Transmission Date: 20090506
  Serious: Yes (Life-Threatening)
  Sender: FDA-Public Use
  Company Number: 08H-163-0315196-00

PATIENT
  Age: 57 Year
  Sex: Male
  Weight: 97.8 kg

DRUGS (1)
  1. VANCOMYCIN HCL [Suspect]
     Indication: PROPHYLAXIS
     Dosage: 1 GM, ONCE, INTRAVENOUS
     Route: 042
     Dates: start: 20081107, end: 20081107

REACTIONS (5)
  - ANAPHYLACTIC REACTION [None]
  - APNOEA [None]
  - ERYTHEMA [None]
  - OEDEMA PERIPHERAL [None]
  - PULSE ABSENT [None]
